FAERS Safety Report 21304230 (Version 1)
Quarter: 2022Q3

REPORT INFORMATION
  Report Type: Spontaneous
  Country: US (occurrence: None)
  Receive Date: 20220907
  Receipt Date: 20220907
  Transmission Date: 20221027
  Serious: No
  Sender: FDA-Public Use
  Company Number: US-ARIS GLOBAL-202107-1168

PATIENT
  Age: 83 Year
  Sex: Female

DRUGS (15)
  1. OXERVATE [Suspect]
     Active Substance: CENEGERMIN-BKBJ
     Indication: Neurotrophic keratopathy
     Route: 047
     Dates: start: 20210628
  2. OXERVATE [Suspect]
     Active Substance: CENEGERMIN-BKBJ
     Indication: Hypoaesthesia eye
  3. AZASITE [Concomitant]
     Active Substance: AZITHROMYCIN MONOHYDRATE
  4. PREDNISOLONE/NEPAFENAC [Concomitant]
  5. LOTEMAX [Concomitant]
     Active Substance: LOTEPREDNOL ETABONATE
  6. RESTASIS [Concomitant]
     Active Substance: CYCLOSPORINE
  7. GABAPENTIN [Concomitant]
     Active Substance: GABAPENTIN
  8. BALSALAZIDE DISODIUM [Concomitant]
     Active Substance: BALSALAZIDE DISODIUM
  9. MELOXICAM [Concomitant]
     Active Substance: MELOXICAM
  10. ASPIRIN [Concomitant]
     Active Substance: ASPIRIN
  11. ISOSORBIDE MONONITRATE [Concomitant]
     Active Substance: ISOSORBIDE MONONITRATE
  12. OMEPRAZOLE\SODIUM BICARBONATE [Concomitant]
     Active Substance: OMEPRAZOLE\SODIUM BICARBONATE
  13. BUPROPION HYDROCHLORIDE [Concomitant]
     Active Substance: BUPROPION HYDROCHLORIDE
  14. LASIX [Concomitant]
     Active Substance: FUROSEMIDE
  15. ARTIFICIAL TEARS [Concomitant]
     Active Substance: GLYCERIN\HYPROMELLOSES\POLYETHYLENE GLYCOL 400

REACTIONS (5)
  - Erythema of eyelid [Unknown]
  - Ocular hyperaemia [Unknown]
  - Eye inflammation [Unknown]
  - Eye pain [Unknown]
  - Product administration error [Unknown]

NARRATIVE: CASE EVENT DATE: 20210713
